FAERS Safety Report 5449782-0 (Version None)
Quarter: 2007Q3

REPORT INFORMATION
  Report Type: 
  Country: None (occurrence: None)
  Receive Date: 20070910
  Receipt Date: 20070910
  Transmission Date: 20080115
  Serious: Yes (Hospitalization)
  Sender: FDA-Public Use
  Company Number: None

PATIENT
  Sex: Female
  Weight: 81.6 kg

DRUGS (1)
  1. TAXOL [Suspect]
     Dosage: 345 MG

REACTIONS (3)
  - CHOLECYSTITIS ACUTE [None]
  - CHOLELITHIASIS [None]
  - HEPATIC ENZYME INCREASED [None]
